FAERS Safety Report 7849607-X (Version None)
Quarter: 2011Q4

REPORT INFORMATION
  Report Type: 
  Country: None (occurrence: None)
  Receive Date: 20111024
  Receipt Date: 20111014
  Transmission Date: 20120403
  Serious: Yes (Hospitalization)
  Sender: FDA-Public Use
  Company Number: 2011P1009457

PATIENT
  Age: 45 Year
  Sex: Male

DRUGS (4)
  1. IVERMECTIN (NO PREF. NAME) [Suspect]
     Indication: ONCHOCERCIASIS
     Dosage: 4 TABLETS; ;PO
     Route: 048
     Dates: start: 20110831
  2. IVERMECTIN (NO PREF. NAME) [Suspect]
     Indication: FILARIASIS LYMPHATIC
     Dosage: 4 TABLETS; ;PO
     Route: 048
     Dates: start: 20110831
  3. ALBENDAZOLE (NO PREF. NAME) [Suspect]
     Indication: ONCHOCERCIASIS
     Dosage: 1 TABLET;   ;PO
     Route: 048
     Dates: start: 20110831
  4. ALBENDAZOLE (NO PREF. NAME) [Suspect]
     Indication: FILARIASIS LYMPHATIC
     Dosage: 1 TABLET;   ;PO
     Route: 048
     Dates: start: 20110831

REACTIONS (6)
  - CHILLS [None]
  - ASTHENIA [None]
  - GAIT DISTURBANCE [None]
  - OCULAR HYPERAEMIA [None]
  - BACK PAIN [None]
  - NERVOUS SYSTEM DISORDER [None]
